FAERS Safety Report 6626576-1 (Version None)
Quarter: 2010Q1

REPORT INFORMATION
  Report Type: 
  Country: None (occurrence: None)
  Receive Date: 20100309
  Receipt Date: 20100309
  Transmission Date: 20100710
  Serious: Yes (Other)
  Sender: FDA-Public Use
  Company Number: None

PATIENT
  Age: 63 Year
  Sex: Male
  Weight: 96.4 kg

DRUGS (1)
  1. ALDARA [Suspect]
     Indication: ACTINIC KERATOSIS
     Dosage: .25 GRAMS FIVE TIMES PER WEEK.

REACTIONS (5)
  - ECZEMA [None]
  - ERYTHEMA [None]
  - FACIAL PAIN [None]
  - PRURITUS [None]
  - RASH [None]
